FAERS Safety Report 13329531 (Version 1)
Quarter: 2017Q1

REPORT INFORMATION
  Report Type: Spontaneous
  Country: US (occurrence: US)
  Receive Date: 20170313
  Receipt Date: 20170313
  Transmission Date: 20170428
  Serious: No
  Sender: FDA-Public Use
  Company Number: US-GLAXOSMITHKLINE-US2017GSK031536

PATIENT
  Age: 59 Year
  Sex: Male

DRUGS (3)
  1. FLOLAN [Suspect]
     Active Substance: EPOPROSTENOL SODIUM
     Indication: PULMONARY HYPERTENSION
     Dosage: 10 DF, CO
     Route: 042
     Dates: start: 20031013
  2. XARELTO [Concomitant]
     Active Substance: RIVAROXABAN
  3. FLOLAN DILUENT PH 12 SOLUTION FOR INJECTION [Suspect]
     Active Substance: GLYCINE\MANNITOL\SODIUM CHLORIDE
     Indication: PULMONARY HYPERTENSION

REACTIONS (2)
  - Complication associated with device [Unknown]
  - Device leakage [Unknown]

NARRATIVE: CASE EVENT DATE: 20170227
